FAERS Safety Report 9236117 (Version 1)
Quarter: 2013Q2

REPORT INFORMATION
  Report Type: Spontaneous
  Country: US (occurrence: None)
  Receive Date: 20130416
  Receipt Date: 20130416
  Transmission Date: 20140414
  Serious: No
  Sender: FDA-Public Use
  Company Number: None

PATIENT
  Age: 88 Year
  Sex: Male
  Weight: 79.1 kg

DRUGS (1)
  1. ZYTIGA [Suspect]
     Indication: PROSTATE CANCER
     Dosage: PRIOR TO ADMISSION ON 8/17/12
     Route: 048
     Dates: end: 20120817

REACTIONS (2)
  - Pneumothorax [None]
  - Thrombocytopenia [None]
